FAERS Safety Report 4352877-6 (Version None)
Quarter: 2004Q2

REPORT INFORMATION
  Report Type: 
  Country: None (occurrence: None)
  Receive Date: 20040428
  Receipt Date: 20040407
  Transmission Date: 20050107
  Serious: Yes (Death)
  Sender: FDA-Public Use
  Company Number: B0329873A

PATIENT
  Sex: Female

DRUGS (1)
  1. DIGOXIN [Suspect]

REACTIONS (2)
  - COMPLETED SUICIDE [None]
  - THERAPEUTIC AGENT TOXICITY [None]
